FAERS Safety Report 5868865-4 (Version None)
Quarter: 2008Q3

REPORT INFORMATION
  Report Type: 
  Country: None (occurrence: None)
  Receive Date: 20080903
  Receipt Date: 20080825
  Transmission Date: 20090109
  Serious: Yes (Other)
  Sender: FDA-Public Use
  Company Number: US-JNJFOC-20080605578

PATIENT
  Sex: Male

DRUGS (1)
  1. ULTRAM ER [Suspect]
     Indication: PAIN
     Route: 048
     Dates: start: 20080609, end: 20080617

REACTIONS (3)
  - GRIP STRENGTH DECREASED [None]
  - TRANSIENT ISCHAEMIC ATTACK [None]
  - VISION BLURRED [None]
